FAERS Safety Report 4634711-X (Version None)
Quarter: 2005Q2

REPORT INFORMATION
  Report Type: 
  Country: None (occurrence: None)
  Receive Date: 20050412
  Receipt Date: 20050330
  Transmission Date: 20051028
  Serious: Yes (Hospitalization)
  Sender: FDA-Public Use
  Company Number: 2005052874

PATIENT
  Age: 26 Year
  Sex: Male

DRUGS (8)
  1. ATARAX [Suspect]
     Indication: ILL-DEFINED DISORDER
     Dosage: ORAL
     Route: 048
  2. HALOPERIDOL [Concomitant]
  3. PROMETHAZINE HYDROCHLORIDE TAB [Concomitant]
  4. DIAZEPAM [Concomitant]
  5. SULPIRIDE (SULPIRIDE) [Concomitant]
  6. ZOTEPINE (ZOTEPINE) [Concomitant]
  7. RISPERDAL [Concomitant]
  8. ALL OTHER THERAPEUTIC PRODUCTS [Concomitant]

REACTIONS (23)
  - BLOOD CREATINE PHOSPHOKINASE INCREASED [None]
  - CATATONIA [None]
  - DEPRESSED LEVEL OF CONSCIOUSNESS [None]
  - DRUG INEFFECTIVE [None]
  - DRUG SCREEN POSITIVE [None]
  - DRUG TOXICITY [None]
  - FLUSHING [None]
  - HOMICIDAL IDEATION [None]
  - HYPERHIDROSIS [None]
  - HYPERTENSION [None]
  - MUSCLE STRAIN [None]
  - MYDRIASIS [None]
  - NEUROLEPTIC MALIGNANT SYNDROME [None]
  - PARALYSIS [None]
  - PNEUMONIA ASPIRATION [None]
  - PSYCHOMOTOR HYPERACTIVITY [None]
  - RESPIRATORY RATE DECREASED [None]
  - SCHIZOPHRENIA [None]
  - SINUS TACHYCARDIA [None]
  - SPEECH DISORDER [None]
  - STRESS [None]
  - STUPOR [None]
  - SUICIDAL IDEATION [None]
